FAERS Safety Report 15388508 (Version 1)
Quarter: 2018Q3

REPORT INFORMATION
  Report Type: Spontaneous
  Country: US (occurrence: US)
  Receive Date: 20180915
  Receipt Date: 20180915
  Transmission Date: 20181010
  Serious: No
  Sender: FDA-Public Use
  Company Number: US-JNJFOC-20180840498

PATIENT

DRUGS (1)
  1. STELARA [Suspect]
     Active Substance: USTEKINUMAB
     Indication: PRODUCT USED FOR UNKNOWN INDICATION
     Route: 058

REACTIONS (10)
  - Asthenopia [Unknown]
  - Myalgia [Unknown]
  - Muscle spasms [Unknown]
  - Arthralgia [Unknown]
  - Fatigue [Unknown]
  - Ocular hyperaemia [Unknown]
  - Loss of personal independence in daily activities [Unknown]
  - Mobility decreased [Unknown]
  - Chest discomfort [Unknown]
  - Muscle tightness [Unknown]
